FAERS Safety Report 7788675-0 (Version None)
Quarter: 2011Q3

REPORT INFORMATION
  Report Type: 
  Country: None (occurrence: None)
  Receive Date: 20110928
  Receipt Date: 20110914
  Transmission Date: 20111222
  Serious: Yes (Hospitalization, Other)
  Sender: FDA-Public Use
  Company Number: JP-ACCORD-005667

PATIENT
  Age: 82 Year
  Sex: Male
  Weight: 75 kg

DRUGS (4)
  1. DISOPYRAMIDE [Suspect]
     Indication: ARRHYTHMIA
     Dosage: 300.00MG
  2. LICORICE (LICORICE) [Suspect]
     Indication: ASTHMA
  3. GARENOXACIN MESYLATE [Suspect]
     Indication: PNEUMONIA BACTERIAL
     Dosage: 800.00-MG-1.0DAYS
     Route: 048
  4. BICALUTAMIDE [Suspect]
     Indication: PROSTATE CANCER
     Dosage: 80.00-MG-1.0DAYS

REACTIONS (6)
  - TORSADE DE POINTES [None]
  - HYPOKALAEMIA [None]
  - PNEUMONIA BACTERIAL [None]
  - VENTRICULAR TACHYCARDIA [None]
  - SPEECH DISORDER [None]
  - LOSS OF CONSCIOUSNESS [None]
